FAERS Safety Report 9513434 (Version 1)
Quarter: 2013Q3

REPORT INFORMATION
  Report Type: Spontaneous
  Country: US (occurrence: US)
  Receive Date: 20130910
  Receipt Date: 20130910
  Transmission Date: 20140515
  Serious: Yes (Other)
  Sender: FDA-Public Use
  Company Number: US-TARO-2012P1061336

PATIENT
  Age: 74 Year
  Sex: Male
  Weight: 104.33 kg

DRUGS (4)
  1. WARFARIN SODIUM TABLETS USP 7.5MG [Suspect]
     Route: 048
     Dates: start: 20121022, end: 20121023
  2. WARFARIN SODIUM TABLETS USP 7.5MG [Suspect]
     Dates: start: 20121028
  3. PROSCAR [Concomitant]
  4. POTASSIUM [Concomitant]

REACTIONS (2)
  - International normalised ratio increased [Recovered/Resolved]
  - Accidental overdose [Recovered/Resolved]
